FAERS Safety Report 21303273 (Version 2)
Quarter: 2022Q3

REPORT INFORMATION
  Report Type: Report from Study
  Country: US (occurrence: US)
  Receive Date: 20220907
  Receipt Date: 20220922
  Transmission Date: 20221027
  Serious: Yes (Hospitalization)
  Sender: FDA-Public Use
  Company Number: US-BoehringerIngelheim-2020-BI-061763

PATIENT
  Sex: Male

DRUGS (1)
  1. OFEV [Suspect]
     Active Substance: NINTEDANIB
     Indication: Idiopathic pulmonary fibrosis
     Route: 048
     Dates: start: 20170116

REACTIONS (10)
  - Gastrointestinal haemorrhage [Unknown]
  - Ulcer haemorrhage [Unknown]
  - Cough [Unknown]
  - Decreased activity [Unknown]
  - Balance disorder [Unknown]
  - Memory impairment [Unknown]
  - Gait disturbance [Unknown]
  - Dizziness [Unknown]
  - Somnolence [Unknown]
  - Fatigue [Unknown]
